FAERS Safety Report 18273111 (Version 3)
Quarter: 2023Q2

REPORT INFORMATION
  Report Type: Report from Study
  Country: MX (occurrence: MX)
  Receive Date: 20200916
  Receipt Date: 20230421
  Transmission Date: 20230722
  Serious: Yes (Other)
  Sender: FDA-Public Use
  Company Number: MX-NOVARTISPH-PHHY2017MX086873

PATIENT
  Age: 65 Year
  Sex: Male
  Weight: 97 kg

DRUGS (5)
  1. EXFORGE HCT [Suspect]
     Active Substance: AMLODIPINE BESYLATE\HYDROCHLOROTHIAZIDE\VALSARTAN
     Indication: Blood pressure increased
     Dosage: 0.5 DOSAGE FORM, QD
     Route: 048
     Dates: start: 2017
  2. EXFORGE HCT [Suspect]
     Active Substance: AMLODIPINE BESYLATE\HYDROCHLOROTHIAZIDE\VALSARTAN
     Dosage: 1 DOSAGE FORM, QD
     Route: 048
     Dates: start: 201706, end: 2017
  3. EXFORGE HCT [Suspect]
     Active Substance: AMLODIPINE BESYLATE\HYDROCHLOROTHIAZIDE\VALSARTAN
     Dosage: 0.5 DOSAGE FORM, QD (? (10/320/25 MG))
     Route: 048
     Dates: start: 2017, end: 202212
  4. EXFORGE HCT [Suspect]
     Active Substance: AMLODIPINE BESYLATE\HYDROCHLOROTHIAZIDE\VALSARTAN
     Dosage: 0.5 DOSAGE FORM, (EVERY THIRD DAY),  (? (10/320/25 MG))
     Route: 048
     Dates: start: 20230331
  5. METOPROLOL [Concomitant]
     Active Substance: METOPROLOL
     Indication: Hypertension
     Dosage: 1 DOSAGE FORM, QD
     Route: 048
     Dates: start: 2000

REACTIONS (9)
  - Fall [Recovered/Resolved]
  - Accident at work [Recovered/Resolved]
  - Ankle fracture [Recovered/Resolved]
  - Myopia [Recovering/Resolving]
  - Limb discomfort [Recovered/Resolved]
  - Dizziness [Recovering/Resolving]
  - Blood pressure inadequately controlled [Recovering/Resolving]
  - Wrong technique in product usage process [Not Recovered/Not Resolved]
  - Off label use [Not Recovered/Not Resolved]

NARRATIVE: CASE EVENT DATE: 20170503
